FAERS Safety Report 10834060 (Version 1)
Quarter: 2015Q1

REPORT INFORMATION
  Report Type: Other
  Country: DK (occurrence: TW)
  Receive Date: 20150219
  Receipt Date: 20150219
  Transmission Date: 20150721
  Serious: Yes (Hospitalization)
  Sender: FDA-Public Use
  Company Number: TW-FRI-1000074612

PATIENT
  Age: 68 Year
  Sex: Female

DRUGS (2)
  1. ESTAZOLAM. [Concomitant]
     Active Substance: ESTAZOLAM
     Indication: PANIC DISORDER
     Dosage: 2 MG
     Route: 065
  2. ESCITALOPRAM [Suspect]
     Active Substance: ESCITALOPRAM OXALATE
     Indication: PANIC DISORDER
     Dosage: 10 MG
     Route: 048

REACTIONS (3)
  - Drug effect incomplete [Recovered/Resolved]
  - Mania [Recovered/Resolved]
  - Hyponatraemia [Recovered/Resolved]
